FAERS Safety Report 5864353-X (Version None)
Quarter: 2008Q3

REPORT INFORMATION
  Report Type: 
  Country: None (occurrence: None)
  Receive Date: 20080829
  Receipt Date: 20080617
  Transmission Date: 20090109
  Serious: No
  Sender: FDA-Public Use
  Company Number: US-ABBOTT-08P-163-0457763-00

PATIENT
  Sex: Female

DRUGS (5)
  1. SIMCOR [Suspect]
     Indication: BLOOD CHOLESTEROL INCREASED
     Route: 048
     Dates: start: 20080603
  2. UNIROID [Concomitant]
     Indication: DRUG USE FOR UNKNOWN INDICATION
  3. DIAVON [Concomitant]
     Indication: DRUG USE FOR UNKNOWN INDICATION
  4. LANSOPRAZOLE [Concomitant]
     Indication: DRUG USE FOR UNKNOWN INDICATION
  5. WATER PILL WITH K [Concomitant]
     Indication: DRUG USE FOR UNKNOWN INDICATION

REACTIONS (3)
  - DIARRHOEA [None]
  - HYPERHIDROSIS [None]
  - RASH [None]
